FAERS Safety Report 9505688 (Version 1)
Quarter: 2013Q1

REPORT INFORMATION
  Report Type: Spontaneous
  Country: US (occurrence: None)
  Receive Date: 20130225
  Receipt Date: 20130225
  Transmission Date: 20140127
  Serious: No
  Sender: FDA-Public Use
  Company Number: 368158

PATIENT
  Age: 62 Year
  Sex: Male

DRUGS (2)
  1. VICTOZA (LIRAGLUTIDE) SOLUTION, 6MG/ML [Suspect]
     Route: 058
     Dates: start: 20121231
  2. METFORMIN (METFORMIN) [Concomitant]

REACTIONS (2)
  - Agitation [None]
  - Night sweats [None]
